FAERS Safety Report 21766981 (Version 1)
Quarter: 2022Q4

REPORT INFORMATION
  Report Type: Spontaneous
  Country: US (occurrence: None)
  Receive Date: 20221222
  Receipt Date: 20221222
  Transmission Date: 20230113
  Serious: Yes (Disabling)
  Sender: FDA-Public Use
  Company Number: None

PATIENT
  Sex: 0

DRUGS (1)
  1. BOTULINUM TOXIN NOS [Suspect]
     Active Substance: BOTULINUM TOXIN NOS
     Indication: Migraine
     Dates: start: 20221122, end: 20221122

REACTIONS (5)
  - Irritability [None]
  - Agitation [None]
  - Anxiety [None]
  - Muscular weakness [None]
  - Anorgasmia [None]

NARRATIVE: CASE EVENT DATE: 20221206
